FAERS Safety Report 20381036 (Version 9)
Quarter: 2022Q2

REPORT INFORMATION
  Report Type: Other
  Country: JP (occurrence: JP)
  Receive Date: 20220127
  Receipt Date: 20220605
  Transmission Date: 20220721
  Serious: Yes (Hospitalization, Other)
  Sender: FDA-Public Use
  Company Number: JP-CHUGAI-2022001155

PATIENT
  Age: 81 Year
  Sex: Female
  Weight: 42.5 kg

DRUGS (6)
  1. ATEZOLIZUMAB [Suspect]
     Active Substance: ATEZOLIZUMAB
     Indication: Lung adenocarcinoma
     Dosage: 1200 MILLIGRAM, SINGLE
     Route: 041
     Dates: start: 20211217, end: 20211217
  2. ATEZOLIZUMAB [Suspect]
     Active Substance: ATEZOLIZUMAB
     Dosage: 1200 MILLIGRAM
     Route: 041
     Dates: start: 20220114, end: 20220204
  3. CARBOPLATIN [Suspect]
     Active Substance: CARBOPLATIN
     Indication: Lung adenocarcinoma
     Dosage: 350 MILLIGRAM, SINGLE
     Route: 041
     Dates: start: 20211217, end: 20211217
  4. CARBOPLATIN [Suspect]
     Active Substance: CARBOPLATIN
     Dosage: 280 MILLIGRAM
     Route: 041
     Dates: start: 20220114, end: 20220204
  5. PEMETREXED DISODIUM [Suspect]
     Active Substance: PEMETREXED DISODIUM
     Indication: Lung adenocarcinoma
     Dosage: 680 MILLIGRAM, SINGLE
     Route: 041
     Dates: start: 20211217, end: 20211217
  6. PEMETREXED DISODIUM [Suspect]
     Active Substance: PEMETREXED DISODIUM
     Dosage: 680 MILLIGRAM
     Route: 041
     Dates: start: 20220114, end: 20220204

REACTIONS (9)
  - Interstitial lung disease [Not Recovered/Not Resolved]
  - White blood cell count decreased [Recovered/Resolved]
  - Neutrophil count decreased [Recovered/Resolved]
  - Platelet count decreased [Recovered/Resolved]
  - Pulmonary congestion [Recovering/Resolving]
  - Alanine aminotransferase increased [Recovered/Resolved]
  - Aspartate aminotransferase increased [Recovered/Resolved]
  - Diarrhoea [Recovering/Resolving]
  - Decreased appetite [Recovered/Resolved]

NARRATIVE: CASE EVENT DATE: 20211220
